FAERS Safety Report 8255722-1 (Version None)
Quarter: 2012Q2

REPORT INFORMATION
  Report Type: 
  Country: None (occurrence: None)
  Receive Date: 20120403
  Receipt Date: 20120403
  Transmission Date: 20120825
  Serious: Yes (Other)
  Sender: FDA-Public Use
  Company Number: None

PATIENT
  Age: 69 Year
  Sex: Female
  Weight: 58.967 kg

DRUGS (1)
  1. CYMBALTA [Suspect]
     Indication: DEPRESSION
     Dosage: DON'T REMEMBER
     Route: 048
     Dates: start: 20091101, end: 20091231

REACTIONS (2)
  - TRIGGER FINGER [None]
  - ARTHRITIS [None]
